FAERS Safety Report 7953387-7 (Version None)
Quarter: 2011Q4

REPORT INFORMATION
  Report Type: 
  Country: None (occurrence: None)
  Receive Date: 20111202
  Receipt Date: 20111121
  Transmission Date: 20120403
  Serious: No
  Sender: FDA-Public Use
  Company Number: US-BIOGENIDEC-2011BI045027

PATIENT
  Sex: Male

DRUGS (2)
  1. AVONEX [Suspect]
     Indication: MULTIPLE SCLEROSIS
     Route: 030
     Dates: start: 20061203
  2. AVONEX [Suspect]
     Route: 030
     Dates: start: 20010126, end: 20060904

REACTIONS (3)
  - COORDINATION ABNORMAL [None]
  - INSOMNIA [None]
  - BALANCE DISORDER [None]
